FAERS Safety Report 8497137-7 (Version None)
Quarter: 2012Q3

REPORT INFORMATION
  Report Type: 
  Country: None (occurrence: None)
  Receive Date: 20120709
  Receipt Date: 20120604
  Transmission Date: 20120928
  Serious: No
  Sender: FDA-Public Use
  Company Number: US-AMGEN-USASP2012035222

PATIENT
  Age: 77 Year
  Sex: Female

DRUGS (1)
  1. ENBREL [Suspect]
     Indication: PSORIATIC ARTHROPATHY
     Dosage: 50 MG, QWK
     Dates: start: 20120316

REACTIONS (6)
  - ARTHRALGIA [None]
  - GINGIVAL PAIN [None]
  - GINGIVAL SWELLING [None]
  - HEADACHE [None]
  - BACK PAIN [None]
  - DIZZINESS [None]
